FAERS Safety Report 4300806-3 (Version None)
Quarter: 2004Q1

REPORT INFORMATION
  Report Type: 
  Country: None (occurrence: None)
  Receive Date: 20040218
  Receipt Date: 20040204
  Transmission Date: 20041129
  Serious: Yes (Other)
  Sender: FDA-Public Use
  Company Number: NSADSS2003014446

PATIENT
  Age: 67 Year
  Sex: Female
  Weight: 87.0906 kg

DRUGS (18)
  1. REMICADE [Suspect]
     Indication: RHEUMATOID ARTHRITIS
     Dosage: SEE IMAGE
     Route: 041
     Dates: start: 20030314, end: 20030314
  2. REMICADE [Suspect]
     Indication: RHEUMATOID ARTHRITIS
     Dosage: SEE IMAGE
     Route: 041
     Dates: start: 20021220
  3. REMICADE [Suspect]
  4. REMICADE [Suspect]
  5. INSULIN NOVOLIN (INSULIN) [Concomitant]
  6. INSULIN HUMAN (INSULIN) [Concomitant]
  7. GLUCOPHAGE [Concomitant]
  8. VIOXX [Concomitant]
  9. PAMELOR [Concomitant]
  10. LORTAB [Concomitant]
  11. METOCLOPRAMIDE [Concomitant]
  12. PROTONIX [Concomitant]
  13. ZOLOFT [Concomitant]
  14. FOSAMAX [Concomitant]
  15. ACETYLSALICYLIC ACID SRT [Concomitant]
  16. ZESTERIL (LISINOPRIL) [Concomitant]
  17. NEURONTIN [Concomitant]
  18. METHOTREXATE SODIUM [Concomitant]

REACTIONS (6)
  - BLOOD GLUCOSE INCREASED [None]
  - CONFUSIONAL STATE [None]
  - HYPOTENSION [None]
  - LOSS OF CONSCIOUSNESS [None]
  - NAUSEA [None]
  - OXYGEN SATURATION DECREASED [None]
